FAERS Safety Report 10369298 (Version 4)
Quarter: 2018Q1

REPORT INFORMATION
  Report Type: Report from Study
  Country: CN (occurrence: CN)
  Receive Date: 20140807
  Receipt Date: 20180308
  Transmission Date: 20180508
  Serious: Yes (Disabling)
  Sender: FDA-Public Use
  Company Number: CN-ROCHE-1444836

PATIENT
  Age: 44 Year
  Sex: Female
  Weight: 68 kg

DRUGS (15)
  1. OBINUTUZUMAB. [Suspect]
     Active Substance: OBINUTUZUMAB
     Indication: DIFFUSE LARGE B-CELL LYMPHOMA
     Dosage: VOLUME OF LAST DOSE : 250 ML?CONCENTRATION OF LAST DOSE: 4 MG/ML?DATE OF MOST RECENT DOSE PRIOR TO S
     Route: 042
     Dates: start: 20131226
  2. DOXORUBICIN [Suspect]
     Active Substance: DOXORUBICIN
     Indication: DIFFUSE LARGE B-CELL LYMPHOMA
     Dosage: DOSE OF LAST DOXORUBICIN: 40 MG?DATE OF MOST RECENT DOSE PRIOR TO SAE: 22/MAY/2014
     Route: 042
     Dates: start: 20131227
  3. ISOPHANE HUMAN INSULIN [Concomitant]
     Active Substance: INSULIN HUMAN
     Indication: DIABETES MELLITUS
     Dosage: PROTAMINE BIOSYNTHETIC INJECTION
     Route: 065
     Dates: start: 20140108
  4. INSULIN [Concomitant]
     Active Substance: INSULIN NOS
     Route: 065
     Dates: start: 20140807, end: 20140807
  5. DEXAMETHASONE SODIUM PHOSPHATE. [Concomitant]
     Active Substance: DEXAMETHASONE SODIUM PHOSPHATE
     Route: 037
     Dates: start: 20140520, end: 20140710
  6. VITAMIN C [Concomitant]
     Active Substance: ASCORBIC ACID
     Route: 065
     Dates: start: 20140801, end: 20140818
  7. VINCRISTINE [Suspect]
     Active Substance: VINCRISTINE
     Indication: DIFFUSE LARGE B-CELL LYMPHOMA
     Dosage: DOSE OF LAST VINCRISTINE: 2 MG?DATE OF MOST RECENT DOSE OF PRIOR TO SAE: 22 MAY 2014
     Route: 050
     Dates: start: 20131227
  8. HUMAN INSULIN [Concomitant]
     Active Substance: INSULIN HUMAN
     Indication: DIABETES MELLITUS
     Route: 065
     Dates: start: 20140109
  9. LIDOCAINE. [Concomitant]
     Active Substance: LIDOCAINE
     Indication: LOCAL ANAESTHESIA
     Route: 065
     Dates: start: 20140731, end: 20140731
  10. CYCLOPHOSPHAMIDE. [Suspect]
     Active Substance: CYCLOPHOSPHAMIDE
     Indication: DIFFUSE LARGE B-CELL LYMPHOMA
     Dosage: DOSE OF LAST CYCLOPHOSPHAMIDE TAKEN 1200 MG?DATE OF MOST RECENT DOSE PRIOR TO SAE: 22/MAY/2014
     Route: 042
     Dates: start: 20131227
  11. PREDNISONE. [Suspect]
     Active Substance: PREDNISONE
     Indication: DIFFUSE LARGE B-CELL LYMPHOMA
     Dosage: DOSE OF LAST PREDNISONE: 100 MG?DATE OF MOST RECENT DOSE PRIOR TO SAE ONSET: 21/MAR/2014
     Route: 065
     Dates: start: 20131227
  12. MANNITOL. [Concomitant]
     Active Substance: MANNITOL
     Route: 065
     Dates: start: 20140801, end: 20140807
  13. CYTARABINE. [Concomitant]
     Active Substance: CYTARABINE
     Route: 037
     Dates: start: 20140520, end: 20140710
  14. DIPHENHYDRAMINE. [Concomitant]
     Active Substance: DIPHENHYDRAMINE
     Route: 065
     Dates: start: 20140805, end: 20140807
  15. IMMUNE GLOBULIN [Concomitant]
     Active Substance: HUMAN IMMUNOGLOBULIN G
     Route: 065
     Dates: start: 20140805, end: 20140807

REACTIONS (1)
  - Nerve injury [Recovered/Resolved with Sequelae]

NARRATIVE: CASE EVENT DATE: 20140702
